FAERS Safety Report 18808278 (Version 1)
Quarter: 2021Q1

REPORT INFORMATION
  Report Type: Spontaneous
  Country: US (occurrence: US)
  Receive Date: 20210129
  Receipt Date: 20210129
  Transmission Date: 20210419
  Serious: Yes (Other)
  Sender: FDA-Public Use
  Company Number: US-GLAXOSMITHKLINE-US2021GSK020955

PATIENT
  Sex: Male

DRUGS (4)
  1. RANITIDINE. [Suspect]
     Active Substance: RANITIDINE
     Dosage: UNKNOWN AT THIS TIME OVER THE COUNTER
     Route: 065
     Dates: start: 198401, end: 201801
  2. RANITIDINE CAPSULE [Suspect]
     Active Substance: RANITIDINE
     Dosage: UNKNOWN AT THIS TIME OVER THE COUNTER
     Route: 065
     Dates: start: 198401, end: 201801
  3. ZANTAC [Suspect]
     Active Substance: RANITIDINE HYDROCHLORIDE
     Dosage: UNKNOWN AT THIS TIME OVER THE COUNTER
     Route: 065
     Dates: start: 198401, end: 201801
  4. ZANTAC [Suspect]
     Active Substance: RANITIDINE HYDROCHLORIDE
     Dosage: UNKNOWN AT THIS TIME OVER THE COUNTER
     Route: 065
     Dates: start: 198401, end: 201801

REACTIONS (1)
  - Lung neoplasm malignant [Unknown]
